FAERS Safety Report 23875217 (Version 1)
Quarter: 2024Q2

REPORT INFORMATION
  Report Type: Spontaneous
  Country: US (occurrence: US)
  Receive Date: 20240520
  Receipt Date: 20240520
  Transmission Date: 20240715
  Serious: No
  Sender: FDA-Public Use
  Company Number: US-FOUNDATIONCONSUMERHC-2024-US-016782

PATIENT
  Age: 22 Year
  Sex: Female
  Weight: 83.92 kg

DRUGS (1)
  1. PLAN B ONE-STEP [Suspect]
     Active Substance: LEVONORGESTREL
     Indication: Post coital contraception
     Dosage: 1.5 MG TABLET X ONCE
     Route: 048
     Dates: start: 20240301, end: 20240301

REACTIONS (3)
  - Vaginal haemorrhage [Recovered/Resolved]
  - Breast tenderness [Recovered/Resolved]
  - Abdominal pain upper [Not Recovered/Not Resolved]

NARRATIVE: CASE EVENT DATE: 20240312
